FAERS Safety Report 19778981 (Version 1)
Quarter: 2021Q3

REPORT INFORMATION
  Report Type: Spontaneous
  Country: US (occurrence: US)
  Receive Date: 20210902
  Receipt Date: 20210902
  Transmission Date: 20211014
  Serious: No
  Sender: FDA-Public Use
  Company Number: None

PATIENT
  Age: 57 Year
  Sex: Female

DRUGS (2)
  1. LETROZOLE. [Concomitant]
     Active Substance: LETROZOLE
     Dates: start: 20190901
  2. VERZENIO [Suspect]
     Active Substance: ABEMACICLIB
     Indication: BREAST CANCER METASTATIC
     Route: 002
     Dates: start: 20210721, end: 20210731

REACTIONS (3)
  - Dizziness [None]
  - Visual impairment [None]
  - Diarrhoea [None]

NARRATIVE: CASE EVENT DATE: 20210721
